FAERS Safety Report 8306828-X (Version None)
Quarter: 2012Q2

REPORT INFORMATION
  Report Type: 
  Country: None (occurrence: None)
  Receive Date: 20120424
  Receipt Date: 20120418
  Transmission Date: 20120825
  Serious: No
  Sender: FDA-Public Use
  Company Number: US-PFIZER INC-2012081797

PATIENT
  Sex: Male
  Weight: 99.773 kg

DRUGS (3)
  1. TIKOSYN [Suspect]
     Indication: ATRIAL FIBRILLATION
     Dosage: 250 UG, 2X/DAY
     Dates: end: 20120330
  2. FELODIPINE [Interacting]
     Indication: BLOOD PRESSURE ABNORMAL
     Dosage: 10 MG, DAILY
     Dates: start: 20110101
  3. DOXYCYCLINE HYCLATE [Interacting]
     Indication: LOCALISED INFECTION
     Dosage: 100 MG, 2X/DAY
     Dates: start: 20120101

REACTIONS (2)
  - DRUG INTERACTION [None]
  - ATRIAL FIBRILLATION [None]
